FAERS Safety Report 6860769-3 (Version None)
Quarter: 2010Q3

REPORT INFORMATION
  Report Type: 
  Country: None (occurrence: None)
  Receive Date: 20100720
  Receipt Date: 20100525
  Transmission Date: 20110219
  Serious: No
  Sender: FDA-Public Use
  Company Number: US-NOVEN-10US001315

PATIENT
  Sex: Female

DRUGS (3)
  1. FENTANYL CITRATE [Suspect]
     Indication: RHEUMATOID ARTHRITIS
     Dosage: 100 UG/HR
     Route: 062
     Dates: start: 20100401
  2. FENTANYL CITRATE [Suspect]
     Indication: SCLERODERMA
     Dosage: 25 UG/HR
     Route: 062
     Dates: start: 20100401
  3. UNKNOWN [Concomitant]

REACTIONS (7)
  - APPLICATION SITE IRRITATION [None]
  - APPLICATION SITE PAIN [None]
  - APPLICATION SITE PRURITUS [None]
  - APPLICATION SITE VESICLES [None]
  - DERMATITIS ALLERGIC [None]
  - PRODUCT QUALITY ISSUE [None]
  - SKIN LACERATION [None]
